FAERS Safety Report 23914497 (Version 2)
Quarter: 2024Q3

REPORT INFORMATION
  Report Type: Spontaneous
  Country: US (occurrence: US)
  Receive Date: 20240529
  Receipt Date: 20240705
  Transmission Date: 20241016
  Serious: Yes (Hospitalization, Other)
  Sender: RANBAXY
  Company Number: US-SUN PHARMACEUTICAL INDUSTRIES LTD-2024R1-448490

PATIENT

DRUGS (5)
  1. PREDNISONE [Suspect]
     Active Substance: PREDNISONE
     Indication: Proteinuria
     Route: 064
  2. AZATHIOPRINE [Suspect]
     Active Substance: AZATHIOPRINE
     Indication: Proteinuria
     Route: 064
  3. MAGNESIUM [Concomitant]
     Active Substance: MAGNESIUM
     Indication: Pre-eclampsia
     Route: 064
  4. ECULIZUMAB [Concomitant]
     Active Substance: ECULIZUMAB
     Indication: Pre-eclampsia
     Route: 064
  5. AMOXICILLIN [Concomitant]
     Active Substance: AMOXICILLIN
     Indication: Meningococcal infection
     Route: 064

REACTIONS (2)
  - Foetal exposure during pregnancy [Unknown]
  - Premature baby [Unknown]
